FAERS Safety Report 9278533 (Version 2)
Quarter: 2013Q2

REPORT INFORMATION
  Report Type: Spontaneous
  Country: US (occurrence: US)
  Receive Date: 20130508
  Receipt Date: 20130521
  Transmission Date: 20140414
  Serious: Yes (Other)
  Sender: FDA-Public Use
  Company Number: US-GLAXOSMITHKLINE-A0976318A

PATIENT
  Age: 61 Year
  Sex: Female
  Weight: 86.26 kg

DRUGS (27)
  1. BENLYSTA [Suspect]
     Indication: SYSTEMIC LUPUS ERYTHEMATOSUS
     Route: 042
     Dates: start: 20111221
  2. SUPPLEMENT [Suspect]
     Indication: SUPPLEMENTATION THERAPY
  3. LEVOTHYROXINE [Concomitant]
     Indication: HYPOTHYROIDISM
     Dosage: 88MCG PER DAY
  4. GABAPENTIN [Concomitant]
     Indication: NEUROPATHY PERIPHERAL
     Dosage: 120MG PER DAY
  5. ATENOLOL [Concomitant]
     Indication: CARDIAC DISORDER
     Dosage: 12.5MG PER DAY
  6. PREDNISONE [Concomitant]
     Indication: SYSTEMIC LUPUS ERYTHEMATOSUS
     Dosage: 5MG PER DAY
  7. PREDNISONE [Concomitant]
     Indication: ADDISON^S DISEASE
  8. LORTAB [Concomitant]
     Indication: PAIN
  9. FENOFIBRATE [Concomitant]
     Indication: BLOOD CHOLESTEROL INCREASED
     Dosage: 160MG PER DAY
  10. TRAZODONE [Concomitant]
     Indication: SLEEP DISORDER
     Dosage: 150MG PER DAY
  11. COMPAZINE [Concomitant]
     Indication: NAUSEA
     Dosage: 10MG PER DAY
  12. TORSEMIDE [Concomitant]
     Indication: ARTHRALGIA
     Dosage: 20MG PER DAY
  13. GAS X [Concomitant]
     Indication: ABDOMINAL DISCOMFORT
  14. IMODIUM [Concomitant]
     Indication: IRRITABLE BOWEL SYNDROME
  15. MULTIPLE VITAMIN [Concomitant]
  16. FORTEO [Concomitant]
     Indication: BONE PAIN
     Dosage: 20MCG PER DAY
     Route: 058
  17. VICTOZA [Concomitant]
     Indication: DIABETES MELLITUS
     Dosage: 1.8MG PER DAY
     Route: 058
  18. VITAMIN D3 [Concomitant]
     Dosage: 2000IU PER DAY
  19. VITAMIN B12 [Concomitant]
  20. VITAMIN C [Concomitant]
  21. PREVACID [Concomitant]
     Dosage: 30MG PER DAY
  22. PREVACID [Concomitant]
     Dosage: 15MG PER DAY
  23. ISOSORBIDE [Concomitant]
     Indication: PULMONARY OEDEMA
     Dosage: 30MG PER DAY
  24. OXYCONTIN [Concomitant]
     Dosage: 10MG PER DAY
  25. VITAMIN D3 [Concomitant]
  26. UNKNOWN [Concomitant]
  27. ORENCIA [Concomitant]

REACTIONS (21)
  - Influenza [Recovered/Resolved]
  - Pain [Not Recovered/Not Resolved]
  - Local swelling [Not Recovered/Not Resolved]
  - Decreased appetite [Not Recovered/Not Resolved]
  - Cough [Recovered/Resolved]
  - Pyrexia [Not Recovered/Not Resolved]
  - Gastric ulcer [Unknown]
  - Arthralgia [Not Recovered/Not Resolved]
  - Epistaxis [Not Recovered/Not Resolved]
  - Contusion [Unknown]
  - Gastric haemorrhage [Unknown]
  - Abdominal discomfort [Unknown]
  - Nausea [Not Recovered/Not Resolved]
  - Diarrhoea [Recovering/Resolving]
  - Muscle spasms [Recovering/Resolving]
  - Blood glucose decreased [Unknown]
  - Hypoaesthesia [Unknown]
  - Weight decreased [Unknown]
  - Muscular weakness [Not Recovered/Not Resolved]
  - Peripheral coldness [Not Recovered/Not Resolved]
  - Fatigue [Unknown]
